FAERS Safety Report 11339202 (Version 1)
Quarter: 2015Q3

REPORT INFORMATION
  Report Type: Spontaneous
  Country: US (occurrence: US)
  Receive Date: 20150803
  Receipt Date: 20150803
  Transmission Date: 20151125
  Serious: No
  Sender: FDA-Public Use
  Company Number: US-ELI_LILLY_AND_COMPANY-US200907006846

PATIENT
  Sex: Male

DRUGS (1)
  1. STRATTERA [Suspect]
     Active Substance: ATOMOXETINE HYDROCHLORIDE
     Dosage: 80 MG, DAILY (1/D)
     Route: 065

REACTIONS (8)
  - Insomnia [Unknown]
  - Micturition disorder [Unknown]
  - Feeling hot [Unknown]
  - Dyspnoea [Unknown]
  - Thermohyperaesthesia [Unknown]
  - Influenza like illness [Unknown]
  - Dry mouth [Unknown]
  - Constipation [Unknown]
